FAERS Safety Report 11081936 (Version 1)
Quarter: 2015Q2

REPORT INFORMATION
  Report Type: Report from Study
  Country: VE (occurrence: VE)
  Receive Date: 20150501
  Receipt Date: 20150501
  Transmission Date: 20150821
  Serious: Yes (Other)
  Sender: FDA-Public Use
  Company Number: VE-SA-2015SA056706

PATIENT
  Age: 61 Year
  Sex: Female

DRUGS (1)
  1. AMARYL M [Suspect]
     Active Substance: GLIMEPIRIDE\METFORMIN
     Indication: DIABETES MELLITUS
     Dosage: 2/1000 MG BID
     Route: 048
     Dates: start: 2008, end: 20150228

REACTIONS (3)
  - Hyperglycaemia [Unknown]
  - Pain in extremity [Unknown]
  - Cerebrovascular accident [Recovered/Resolved with Sequelae]

NARRATIVE: CASE EVENT DATE: 2015
